FAERS Safety Report 7070921-2 (Version None)
Quarter: 2010Q4

REPORT INFORMATION
  Report Type: 
  Country: None (occurrence: None)
  Receive Date: 20101029
  Receipt Date: 20101021
  Transmission Date: 20110411
  Serious: Yes (Death, Other)
  Sender: FDA-Public Use
  Company Number: JP-BAYER-201011136BYL

PATIENT
  Age: 73 Year
  Sex: Male
  Weight: 75 kg

DRUGS (11)
  1. NEXAVAR [Suspect]
     Indication: HEPATIC NEOPLASM MALIGNANT
     Dosage: TOTAL DAILY DOSE: 800 MG  UNIT DOSE: 200 MG
     Route: 048
     Dates: start: 20090708, end: 20090813
  2. NEXAVAR [Suspect]
     Dosage: UNIT DOSE: 200 MG
     Route: 048
     Dates: start: 20090813, end: 20091015
  3. NEXAVAR [Suspect]
     Dosage: UNIT DOSE: 200 MG
     Route: 048
     Dates: end: 20100901
  4. NITRODERM [Concomitant]
     Dosage: SINCE BEFORE ADMINISTRATION
     Route: 046
  5. URSO 250 [Concomitant]
     Dosage: SINCE BEFORE ADMINISTRATION
     Route: 048
  6. ADALAT CC [Concomitant]
     Dosage: SINCE BEFORE ADMINISTRATION
     Route: 048
  7. ACTOS [Concomitant]
     Dosage: SINCE BEFORE ADMINISTRATION
     Route: 048
  8. TAKEPRON [Concomitant]
     Dosage: SINCE BEFORE ADMINISTRATION
     Route: 048
  9. PROMAC [Concomitant]
     Dosage: SINCE BEFORE ADMINISTRATION
     Route: 048
  10. DAIO-KANZO-TO [Concomitant]
     Dosage: TOTAL DAILY DOSE: 5 G
     Route: 048
     Dates: start: 20090831
  11. BARACLUDE [Concomitant]
     Route: 048
     Dates: start: 20091013

REACTIONS (6)
  - ALOPECIA [None]
  - DIARRHOEA [None]
  - HEPATIC FUNCTION ABNORMAL [None]
  - HEPATIC NEOPLASM MALIGNANT [None]
  - PLATELET COUNT DECREASED [None]
  - PYREXIA [None]
